FAERS Safety Report 4878643-0 (Version None)
Quarter: 2006Q1

REPORT INFORMATION
  Report Type: 
  Country: None (occurrence: None)
  Receive Date: 20060110
  Receipt Date: 20060110
  Transmission Date: 20060701
  Serious: Yes (Hospitalization, Other)
  Sender: FDA-Public Use
  Company Number: None

PATIENT
  Sex: Male
  Weight: 113 kg

DRUGS (4)
  1. DOXORUBICIN HCL [Suspect]
     Indication: HODGKIN'S DISEASE
     Dosage: SEE IMAGE
     Dates: start: 20051207
  2. GEMCITABINE HYDROCHLORIDE [Suspect]
     Dosage: SEE IMAGE
     Dates: start: 20051207
  3. VINBLASTINE SULFATE [Suspect]
     Dosage: SEE IMAGE
     Dates: start: 20051207
  4. NEUPOGEN [Concomitant]

REACTIONS (16)
  - ANXIETY [None]
  - ARTHRALGIA [None]
  - BLOOD IMMUNOGLOBULIN G [None]
  - BLOOD IMMUNOGLOBULIN G ABNORMAL [None]
  - BRONCHOALVEOLAR LAVAGE ABNORMAL [None]
  - CHILLS [None]
  - DYSPNOEA [None]
  - GINGIVAL ULCERATION [None]
  - HYPERHIDROSIS [None]
  - LUNG INFILTRATION [None]
  - MYCOPLASMA SEROLOGY POSITIVE [None]
  - OXYGEN SATURATION DECREASED [None]
  - PAIN [None]
  - PYREXIA [None]
  - SINUSITIS [None]
  - VIRAL INFECTION [None]
